FAERS Safety Report 10774385 (Version 2)
Quarter: 2015Q1

REPORT INFORMATION
  Report Type: Spontaneous
  Country: US (occurrence: US)
  Receive Date: 20150209
  Receipt Date: 20150210
  Transmission Date: 20150721
  Serious: Yes (Hospitalization)
  Sender: FDA-Public Use
  Company Number: US-PFIZER INC-2014342050

PATIENT
  Age: 78 Year
  Sex: Male

DRUGS (2)
  1. ADRIAMYCIN [Suspect]
     Active Substance: DOXORUBICIN HYDROCHLORIDE
     Indication: LEIOMYOSARCOMA
     Dosage: 135 MG, EVERY 3 WEEKS (ONCE EVERY 21 DAYS)
     Route: 042
  2. ZINECARD [Suspect]
     Active Substance: DEXRAZOXANE HYDROCHLORIDE
     Indication: LEIOMYOSARCOMA
     Dosage: 1350 MG, UNK
     Route: 042

REACTIONS (1)
  - Haemoptysis [Unknown]
